FAERS Safety Report 24015336 (Version 1)
Quarter: 2024Q2

REPORT INFORMATION
  Report Type: Spontaneous
  Country: CZ (occurrence: CZ)
  Receive Date: 20240626
  Receipt Date: 20240626
  Transmission Date: 20240716
  Serious: Yes (Other)
  Sender: FDA-Public Use
  Company Number: CZ-Zentiva-2024-ZT-011012

PATIENT
  Age: 85 Year
  Sex: Male

DRUGS (5)
  1. BRENTUXIMAB VEDOTIN [Suspect]
     Active Substance: BRENTUXIMAB VEDOTIN
     Dosage: 1.8 MILLIGRAM/KILOGRAM
     Route: 065
  2. BRENTUXIMAB VEDOTIN [Suspect]
     Active Substance: BRENTUXIMAB VEDOTIN
     Dosage: 6 CYCLES OF TREATMENT IN THREE-WEEK INTERVALS
     Route: 065
  3. PREDNISONE [Suspect]
     Active Substance: PREDNISONE
     Dosage: 5 CYCLES IN THREE-WEEK INTERVALS
     Route: 065
  4. CYCLOPHOSPHAMIDE [Suspect]
     Active Substance: CYCLOPHOSPHAMIDE
     Dosage: 50 PERCENT REDUCTION, 5 CYCLES IN THREE-WEEK INTERVALS
     Route: 065
  5. ETOPOSIDE [Suspect]
     Active Substance: ETOPOSIDE
     Dosage: 20 PERCENT REDUCTION, 5 CYCLES IN THREE-WEEK INTERVALS
     Route: 065

REACTIONS (2)
  - Myelosuppression [Recovered/Resolved]
  - Thrombocytopenia [Recovered/Resolved]
